FAERS Safety Report 15914283 (Version 1)
Quarter: 2019Q1

REPORT INFORMATION
  Report Type: Spontaneous
  Country: US (occurrence: US)
  Receive Date: 20190204
  Receipt Date: 20190204
  Transmission Date: 20190417
  Serious: Yes (Death)
  Sender: FDA-Public Use
  Company Number: None

PATIENT
  Age: 30 Year
  Sex: Male
  Weight: 55 kg

DRUGS (2)
  1. THYMOGLOBULIN [Suspect]
     Active Substance: LAPINE T-LYMPHOCYTE IMMUNE GLOBULIN
     Indication: PREOPERATIVE CARE
  2. THYMOGLOBULIN [Concomitant]
     Active Substance: LAPINE T-LYMPHOCYTE IMMUNE GLOBULIN
     Dates: start: 20190125, end: 20190125

REACTIONS (5)
  - Circulatory collapse [None]
  - Bronchospasm [None]
  - Transplantation complication [None]
  - Anaphylactic reaction [None]
  - Renal transplant [None]

NARRATIVE: CASE EVENT DATE: 20190125
